FAERS Safety Report 6150251-3 (Version None)
Quarter: 2009Q2

REPORT INFORMATION
  Report Type: 
  Country: None (occurrence: None)
  Receive Date: 20090409
  Receipt Date: 20090326
  Transmission Date: 20091009
  Serious: Yes (Hospitalization)
  Sender: FDA-Public Use
  Company Number: JP-PFIZER INC-2009173546

PATIENT

DRUGS (2)
  1. METHYLPREDNISOLONE AND METHYLPREDNISOLONE ACETATE AND METHYLPREDNISOLO [Suspect]
     Dosage: 80 MG, 1X/DAY
     Route: 048
  2. PREDNISOLONE AND PREDNISOLONE STEAGLATE [Concomitant]
     Dosage: UNK
     Route: 048
     Dates: end: 20080909

REACTIONS (2)
  - ILEUS PARALYTIC [None]
  - STRONGYLOIDIASIS [None]
